FAERS Safety Report 6714261-7 (Version None)
Quarter: 2010Q2

REPORT INFORMATION
  Report Type: 
  Country: None (occurrence: None)
  Receive Date: 20100506
  Receipt Date: 20090701
  Transmission Date: 20101027
  Serious: No
  Sender: FDA-Public Use
  Company Number: US-BAUSCH-2009BL003241

PATIENT
  Age: 90 Year
  Sex: Male

DRUGS (6)
  1. LOTEMAX [Suspect]
     Indication: DRY EYE
     Route: 047
     Dates: start: 20090524, end: 20090630
  2. LOTEMAX [Suspect]
     Indication: OFF LABEL USE
     Route: 047
     Dates: start: 20090524, end: 20090630
  3. ALBUTEROL [Concomitant]
     Indication: DYSPNOEA
     Route: 049
     Dates: start: 20081001
  4. IPRATROPIUM BROMIDE [Concomitant]
     Indication: DYSPNOEA
     Route: 049
  5. METOPROLOL [Concomitant]
     Indication: CARDIAC DISORDER
     Route: 048
     Dates: start: 19970101
  6. FUROSEMIDE [Concomitant]
     Indication: CARDIAC DISORDER
     Route: 048
     Dates: start: 19970101

REACTIONS (1)
  - VISION BLURRED [None]
